FAERS Safety Report 14190412 (Version 1)
Quarter: 2017Q4

REPORT INFORMATION
  Report Type: Spontaneous
  Country: ET (occurrence: ET)
  Receive Date: 20171115
  Receipt Date: 20171115
  Transmission Date: 20180321
  Serious: Yes (Death)
  Sender: FDA-Public Use
  Company Number: ET-JNJFOC-20171113157

PATIENT
  Age: 23 Year
  Sex: Male
  Weight: 49 kg

DRUGS (1)
  1. BEDAQUILINE [Suspect]
     Active Substance: BEDAQUILINE
     Indication: TUBERCULOSIS
     Route: 048
     Dates: start: 20171025, end: 20171107

REACTIONS (2)
  - Dyspnoea [Fatal]
  - Pyrexia [Unknown]

NARRATIVE: CASE EVENT DATE: 20171104
